FAERS Safety Report 13376267 (Version 4)
Quarter: 2017Q3

REPORT INFORMATION
  Report Type: Spontaneous
  Country: US (occurrence: US)
  Receive Date: 20170328
  Receipt Date: 20170725
  Transmission Date: 20171127
  Serious: Yes (Life-Threatening, Hospitalization, Other)
  Sender: FDA-Public Use
  Company Number: US-WEST-WARD PHARMACEUTICALS CORP.-US-H14001-17-00813

PATIENT
  Age: 77 Year
  Sex: Female

DRUGS (1)
  1. CODEINE [Suspect]
     Active Substance: CODEINE
     Indication: SPINAL FUSION SURGERY
     Route: 042
     Dates: start: 20120823, end: 201208

REACTIONS (5)
  - Contraindicated product administered [Recovered/Resolved]
  - Blood pressure decreased [Recovering/Resolving]
  - Haemorrhage [Recovered/Resolved]
  - Fall [Recovered/Resolved]
  - Dizziness [Recovered/Resolved]

NARRATIVE: CASE EVENT DATE: 201208
